FAERS Safety Report 8430290-X (Version None)
Quarter: 2012Q2

REPORT INFORMATION
  Report Type: 
  Country: None (occurrence: None)
  Receive Date: 20120612
  Receipt Date: 20120530
  Transmission Date: 20120825
  Serious: Yes (Hospitalization)
  Sender: FDA-Public Use
  Company Number: US-ELI_LILLY_AND_COMPANY-US201202007431

PATIENT
  Sex: Male
  Weight: 90.703 kg

DRUGS (2)
  1. ZYPREXA RELPREVV [Suspect]
     Indication: SCHIZOPHRENIA
     Dosage: 150 MG, OTHER
     Dates: start: 20120125
  2. ZYPREXA RELPREVV [Suspect]
     Dosage: 210 MG, UNK

REACTIONS (2)
  - DRUG DOSE OMISSION [None]
  - SCHIZOPHRENIA [None]
